FAERS Safety Report 14849687 (Version 12)
Quarter: 2018Q3

REPORT INFORMATION
  Report Type: Report from Study
  Country: IT (occurrence: IT)
  Receive Date: 20180504
  Receipt Date: 20180907
  Transmission Date: 20181010
  Serious: Yes (Hospitalization, Other)
  Sender: FDA-Public Use
  Company Number: IT-PFIZER INC-2018184370

PATIENT
  Age: 65 Year
  Sex: Male

DRUGS (11)
  1. HYDROCHLOROTHIAZIDE AND LISINOPRIL [Interacting]
     Active Substance: HYDROCHLOROTHIAZIDE\LISINOPRIL
     Dosage: UNK
     Route: 048
  2. CARBAMAZEPINE. [Interacting]
     Active Substance: CARBAMAZEPINE
     Indication: EPILEPSY
     Dosage: UNK
     Route: 065
  3. METFORMIN [Interacting]
     Active Substance: METFORMIN HYDROCHLORIDE
     Dosage: UNK
     Route: 065
  4. INFLUENZA VIRUS VACCINE MONOVALENT [Interacting]
     Active Substance: INFLUENZA VIRUS VACCINE
     Dosage: UNK
     Route: 065
  5. ROSUVASTATIN. [Interacting]
     Active Substance: ROSUVASTATIN
     Dosage: UNK
     Route: 048
  6. AMLODIPINE BESILATE [Suspect]
     Active Substance: AMLODIPINE BESYLATE
     Dosage: UNK
     Route: 065
  7. TAMSULOSIN [Interacting]
     Active Substance: TAMSULOSIN
     Dosage: UNK
     Route: 065
  8. LEVETIRACETAM. [Interacting]
     Active Substance: LEVETIRACETAM
     Dosage: UNK
     Route: 065
  9. ATENOLOL. [Interacting]
     Active Substance: ATENOLOL
     Dosage: UNK
     Route: 065
  10. INSULIN [Interacting]
     Active Substance: INSULIN NOS
     Dosage: UNK
     Route: 065
  11. LOSARTAN. [Interacting]
     Active Substance: LOSARTAN
     Dosage: UNK
     Route: 065

REACTIONS (8)
  - Guillain-Barre syndrome [Unknown]
  - Paraplegia [Unknown]
  - Drug interaction [Unknown]
  - Coordination abnormal [Unknown]
  - Paraesthesia [Unknown]
  - Mobility decreased [Unknown]
  - Respiratory failure [Unknown]
  - Loss of personal independence in daily activities [Unknown]
